FAERS Safety Report 6651897-6 (Version None)
Quarter: 2010Q1

REPORT INFORMATION
  Report Type: 
  Country: None (occurrence: None)
  Receive Date: 20100325
  Receipt Date: 20100315
  Transmission Date: 20100710
  Serious: Yes (Hospitalization)
  Sender: FDA-Public Use
  Company Number: US-JNJFOC-20100108671

PATIENT
  Sex: Female

DRUGS (4)
  1. TYLENOL-500 [Suspect]
  2. TYLENOL-500 [Suspect]
     Indication: PYREXIA
  3. MOTRIN IB [Suspect]
  4. MOTRIN IB [Suspect]
     Indication: PYREXIA

REACTIONS (2)
  - INTUSSUSCEPTION [None]
  - PRODUCT QUALITY ISSUE [None]
